FAERS Safety Report 6592427 (Version 5)
Quarter: 2015Q3

REPORT INFORMATION
  Report Type: Spontaneous
  Country: JP (occurrence: JP)
  Receive Date: 20080325
  Receipt Date: 20150828
  Transmission Date: 20151125
  Serious: Yes (Hospitalization, Disabling, Other)
  Sender: FDA-Public Use
  Company Number: JP-JNJFOC-20080303971

PATIENT
  Sex: Female

DRUGS (14)
  1. TRIHEXYPHENIDYL [Concomitant]
     Active Substance: TRIHEXYPHENIDYL
     Indication: PARKINSONISM
     Route: 048
     Dates: start: 19981127, end: 20050516
  2. PEROSPIRONE [Concomitant]
     Active Substance: PEROSPIRONE
     Indication: SCHIZOPHRENIA
     Route: 048
     Dates: start: 19950516
  3. CONTOMIN [Concomitant]
     Active Substance: CHLORPROMAZINE
     Indication: SCHIZOPHRENIA
     Route: 048
     Dates: start: 20020621, end: 20050516
  4. HALOMONTH [Suspect]
     Active Substance: HALOPERIDOL DECANOATE
     Indication: SCHIZOPHRENIA
     Route: 030
     Dates: start: 20040326, end: 20050506
  5. HALOPERIDOL. [Concomitant]
     Active Substance: HALOPERIDOL
     Indication: SCHIZOPHRENIA
     Route: 048
     Dates: start: 20021127, end: 20050516
  6. SULTOPRIDE [Concomitant]
     Active Substance: SULTOPRIDE
     Indication: INSOMNIA
     Route: 048
     Dates: start: 20030516, end: 20050516
  7. SULTOPRIDE [Concomitant]
     Active Substance: SULTOPRIDE
     Indication: SCHIZOPHRENIA
     Route: 048
     Dates: start: 20030516, end: 20050516
  8. SULTOPRIDE [Concomitant]
     Active Substance: SULTOPRIDE
     Indication: SCHIZOPHRENIA
     Route: 048
     Dates: start: 20020220, end: 20050516
  9. ZOTEPINE [Concomitant]
     Active Substance: ZOTEPINE
     Indication: SCHIZOPHRENIA
     Route: 048
     Dates: start: 19870219, end: 20050516
  10. CONTOMIN [Concomitant]
     Active Substance: CHLORPROMAZINE
     Indication: SCHIZOPHRENIA
     Route: 048
     Dates: end: 20050516
  11. SULTOPRIDE [Concomitant]
     Active Substance: SULTOPRIDE
     Indication: INSOMNIA
     Route: 048
     Dates: start: 20020220, end: 20050516
  12. LEVOMEPROMAZINE [Concomitant]
     Active Substance: LEVOMEPROMAZINE
     Indication: SCHIZOPHRENIA
     Route: 048
     Dates: start: 19980710, end: 20050516
  13. VEGETAMIN-A [Concomitant]
     Active Substance: CHLORPROMAZINE\PROMETHAZINE
     Indication: INSOMNIA
     Route: 048
     Dates: end: 20050516
  14. RISPERDAL [Suspect]
     Active Substance: RISPERIDONE
     Indication: SCHIZOPHRENIA
     Route: 048
     Dates: start: 20040130, end: 200506

REACTIONS (6)
  - Hypoxic-ischaemic encephalopathy [Unknown]
  - Cerebral disorder [Unknown]
  - Cardio-respiratory arrest [Unknown]
  - Ventricular tachycardia [Unknown]
  - Electrocardiogram QT prolonged [Recovered/Resolved]
  - Ventricular fibrillation [Unknown]

NARRATIVE: CASE EVENT DATE: 2004
